FAERS Safety Report 10049689 (Version 1)
Quarter: 2014Q1

REPORT INFORMATION
  Report Type: Spontaneous
  Country: IT (occurrence: None)
  Receive Date: 20140328
  Receipt Date: 20140328
  Transmission Date: 20141002
  Serious: Yes (Hospitalization)
  Sender: FDA-Public Use
  Company Number: 2014DEPIT00056

PATIENT
  Age: 42 Year
  Sex: Male

DRUGS (1)
  1. DEPOCYT [Suspect]
     Indication: ACUTE LYMPHOCYTIC LEUKAEMIA
     Route: 037
     Dates: start: 20120123, end: 20120123

REACTIONS (4)
  - Somnolence [None]
  - Depressed level of consciousness [None]
  - Coma [None]
  - Staphylococcal infection [None]
